FAERS Safety Report 4802718-5 (Version None)
Quarter: 2005Q4

REPORT INFORMATION
  Report Type: 
  Country: None (occurrence: None)
  Receive Date: 20051014
  Receipt Date: 20040820
  Transmission Date: 20060501
  Serious: Yes (Hospitalization)
  Sender: FDA-Public Use
  Company Number: 2002062626

PATIENT
  Age: 61 Year
  Sex: Female
  Weight: 56.6996 kg

DRUGS (3)
  1. NEURONTIN [Suspect]
     Indication: PAIN
     Dosage: 900 MG (3 IN 1 D), ORAL
     Route: 048
     Dates: start: 20020101
  2. CELECOXIB (CELECOXIB) [Suspect]
     Indication: ILL-DEFINED DISORDER
     Dosage: 200 MG, ORAL
     Route: 048
  3. ERYTHROMYCIN [Suspect]
     Indication: INFECTION
     Dosage: ORAL
     Route: 048
     Dates: start: 20031215

REACTIONS (20)
  - ABDOMINAL PAIN [None]
  - ALOPECIA [None]
  - ANXIETY [None]
  - ARTHRALGIA [None]
  - ASTHENIA [None]
  - CONSTIPATION [None]
  - CYSTITIS [None]
  - DEPRESSION [None]
  - DRY EYE [None]
  - EYE OEDEMA [None]
  - FACE OEDEMA [None]
  - FALL [None]
  - GASTRITIS [None]
  - INFECTION [None]
  - MUSCLE STRAIN [None]
  - MYALGIA [None]
  - PAIN [None]
  - POLLAKIURIA [None]
  - VAGINAL DISCHARGE [None]
  - WEIGHT INCREASED [None]
